FAERS Safety Report 10058292 (Version 1)
Quarter: 2014Q2

REPORT INFORMATION
  Report Type: Spontaneous
  Country: US (occurrence: None)
  Receive Date: 20140402
  Receipt Date: 20140402
  Transmission Date: 20141212
  Serious: Yes (Life-Threatening, Hospitalization, Other)
  Sender: FDA-Public Use
  Company Number: AXC-2014-000214

PATIENT
  Age: 27 Year
  Sex: Male

DRUGS (6)
  1. MESALAMINE [Suspect]
     Indication: COLITIS ULCERATIVE
     Dosage: 1.2 G, QD, UNKNOWN
  2. IMATINIB [Suspect]
     Indication: PRODUCT USED FOR UNKNOWN INDICATION
  3. HYDROXYUREA [Suspect]
     Indication: PRODUCT USED FOR UNKNOWN INDICATION
  4. VINCRISTINE [Suspect]
     Indication: EOSINOPHILIA
  5. ACETAMINOPHEN (PARACETAMOL) UNKNOWN [Concomitant]
  6. METHYLPREDNISOLONE (METHYLPREDNISOLONE) [Concomitant]

REACTIONS (20)
  - Hypereosinophilic syndrome [None]
  - Diarrhoea [None]
  - Weight decreased [None]
  - Coagulopathy [None]
  - Fatigue [None]
  - Lymphadenopathy [None]
  - Rash papular [None]
  - Abdominal distension [None]
  - Vitamin K deficiency [None]
  - Exercise tolerance decreased [None]
  - Mucosal inflammation [None]
  - Pancytopenia [None]
  - Eosinophilic myocarditis [None]
  - Pulmonary hypertension [None]
  - Pneumonia bacterial [None]
  - Pulmonary alveolar haemorrhage [None]
  - Acute respiratory failure [None]
  - Haemoptysis [None]
  - Neuropathy peripheral [None]
  - Respiratory distress [None]
